FAERS Safety Report 23689744 (Version 1)
Quarter: 2024Q1

REPORT INFORMATION
  Report Type: Spontaneous
  Country: US (occurrence: US)
  Receive Date: 20240331
  Receipt Date: 20240331
  Transmission Date: 20240409
  Serious: No
  Sender: FDA-Public Use
  Company Number: US-BAUSCHBL-2024BNL003787

PATIENT
  Sex: Female

DRUGS (1)
  1. BRINZOLAMIDE [Suspect]
     Active Substance: BRINZOLAMIDE
     Indication: Product used for unknown indication
     Route: 047

REACTIONS (4)
  - Dizziness [Unknown]
  - Product container seal issue [Unknown]
  - Product quality issue [Unknown]
  - Product deposit [Unknown]
